FAERS Safety Report 4735454-4 (Version None)
Quarter: 2005Q3

REPORT INFORMATION
  Report Type: 
  Country: None (occurrence: None)
  Receive Date: 20050802
  Receipt Date: 20050727
  Transmission Date: 20060218
  Serious: Yes (Hospitalization)
  Sender: FDA-Public Use
  Company Number: A001-002-006591

PATIENT
  Age: 75 Year
  Sex: Male
  Weight: 90 kg

DRUGS (9)
  1. ARICEPT [Suspect]
     Indication: DEMENTIA ALZHEIMER'S TYPE
     Dosage: 10 MG, 1 IN 1 D, ORAL
     Route: 048
  2. LEVOFLOXACIN [Suspect]
     Indication: URINARY TRACT INFECTION
     Dosage: SEE IMAGE
  3. ASPIRIN [Suspect]
     Dosage: 81 MG
  4. CITALOPRAM (CITALOPRAM) [Suspect]
     Dosage: 40 MG
  5. DOXAZOSIN (DOXAZOSIN) [Concomitant]
  6. FOLATE (FOLATE SODIUM) [Concomitant]
  7. GABAPENTIN [Concomitant]
  8. DIVALPROEX SODIUM [Concomitant]
  9. RANITIDINE [Concomitant]

REACTIONS (6)
  - AMNESIA [None]
  - BLOOD CREATININE INCREASED [None]
  - BLOOD UREA INCREASED [None]
  - CONVULSION [None]
  - DRUG INTERACTION [None]
  - PLATELET COUNT DECREASED [None]
